FAERS Safety Report 23895745 (Version 2)
Quarter: 2024Q2

REPORT INFORMATION
  Report Type: Spontaneous
  Country: US (occurrence: US)
  Receive Date: 20240524
  Receipt Date: 20240618
  Transmission Date: 20240716
  Serious: No
  Sender: FDA-Public Use
  Company Number: US-PFIZER INC-202400172976

PATIENT
  Age: 9 Year
  Sex: Female
  Weight: 21.9 kg

DRUGS (1)
  1. GENOTROPIN [Suspect]
     Active Substance: SOMATROPIN
     Indication: Short stature
     Dosage: ALTERNATE 0.8MG WITH 1.0MG EVERY OTHER DAY
     Route: 058
     Dates: start: 20240429

REACTIONS (2)
  - Wrong technique in device usage process [Unknown]
  - Device mechanical issue [Recovered/Resolved]
